FAERS Safety Report 9380492 (Version 1)
Quarter: 2013Q2

REPORT INFORMATION
  Report Type: Spontaneous
  Country: FR (occurrence: None)
  Receive Date: 20130628
  Receipt Date: 20130628
  Transmission Date: 20140414
  Serious: Yes (Hospitalization, Other)
  Sender: FDA-Public Use
  Company Number: 2013000141

PATIENT
  Age: 85 Year
  Sex: Female

DRUGS (7)
  1. ACEON (PERINDOPRIL ERBUMINE) TABLET [Suspect]
     Indication: HYPERTENSION
     Route: 048
  2. LASILIX (FUROSEMIDE) [Suspect]
     Indication: HYPERTENSION
     Route: 048
  3. NITRIDERM [Suspect]
     Indication: PRODUCT USED FOR UNKNOWN INDICATION
     Route: 062
  4. NOVOMIX (INSULIN ASPART) [Concomitant]
  5. NOVORAPID (INSULIN ASPART) [Concomitant]
  6. TAHOR (ATORVASTATIN CALCIUM) [Concomitant]
  7. CELESTENE (BETAMETHASONE) [Concomitant]

REACTIONS (8)
  - Facial bones fracture [None]
  - Vertigo [None]
  - Diarrhoea [None]
  - Metabolic acidosis [None]
  - Renal failure acute [None]
  - Fall [None]
  - Orthostatic hypotension [None]
  - Asthenia [None]
